FAERS Safety Report 9502698 (Version 1)
Quarter: 2013Q3

REPORT INFORMATION
  Report Type: Spontaneous
  Country: US (occurrence: US)
  Receive Date: 20130906
  Receipt Date: 20130906
  Transmission Date: 20140515
  Serious: No
  Sender: FDA-Public Use
  Company Number: US-BAYER-2013-107745

PATIENT
  Age: 3 Year
  Sex: Male
  Weight: 16 kg

DRUGS (1)
  1. ALEVE CAPLET [Suspect]
     Dosage: 1/2 DF, ONCE
     Route: 048
     Dates: start: 20130902, end: 20130902

REACTIONS (1)
  - Accidental exposure to product by child [None]
